FAERS Safety Report 8215563-8 (Version None)
Quarter: 2012Q1

REPORT INFORMATION
  Report Type: 
  Country: None (occurrence: None)
  Receive Date: 20120313
  Receipt Date: 20120307
  Transmission Date: 20120608
  Serious: Yes (Death, Hospitalization)
  Sender: FDA-Public Use
  Company Number: SP05592

PATIENT
  Age: 72 Year
  Sex: Female
  Weight: 68.4932 kg

DRUGS (7)
  1. TOPROL-XL [Concomitant]
  2. MOVIPREP [Suspect]
     Indication: BOWEL PREPARATION
     Dosage: ORAL
     Route: 048
     Dates: start: 20120305, end: 20120305
  3. ATIVAN [Concomitant]
  4. BENADRYL [Concomitant]
  5. LOTREL [Concomitant]
  6. ANUSOL (SUPPOSITORY) [Concomitant]
  7. MILK OF MAGNESIUM [Concomitant]

REACTIONS (4)
  - ABDOMINAL DISTENSION [None]
  - PROCEDURAL COMPLICATION [None]
  - LARGE INTESTINE PERFORATION [None]
  - DISSEMINATED INTRAVASCULAR COAGULATION [None]
